FAERS Safety Report 21301794 (Version 3)
Quarter: 2022Q4

REPORT INFORMATION
  Report Type: Report from Study
  Country: DE (occurrence: None)
  Receive Date: 20220907
  Receipt Date: 20221121
  Transmission Date: 20230113
  Serious: Yes (Hospitalization)
  Sender: FDA-Public Use
  Company Number: DE-ROCHE-3171445

PATIENT
  Age: 67 Year
  Sex: Male
  Weight: 64.8 kg

DRUGS (4)
  1. ATEZOLIZUMAB [Suspect]
     Active Substance: ATEZOLIZUMAB
     Indication: Adenocarcinoma pancreas
     Dosage: LAST DOSE ON 03/AUG/2022
     Route: 042
     Dates: start: 20220414, end: 20220803
  2. PELAREOREP [Suspect]
     Active Substance: PELAREOREP
     Indication: Adenocarcinoma pancreas
     Dosage: DAILY DOSE: 4.5 X10 TO THE POWER 10 TCID50/ML
     Route: 042
     Dates: start: 20220412, end: 20220803
  3. GEMCITABINE [Suspect]
     Active Substance: GEMCITABINE
     Indication: Adenocarcinoma pancreas
     Route: 042
     Dates: start: 20220412, end: 20220719
  4. PACLITAXEL [Suspect]
     Active Substance: PACLITAXEL
     Indication: Adenocarcinoma pancreas
     Route: 042
     Dates: start: 20220412, end: 20220719

REACTIONS (1)
  - Autoimmune hepatitis [Not Recovered/Not Resolved]

NARRATIVE: CASE EVENT DATE: 20220819
